FAERS Safety Report 8215998-3 (Version None)
Quarter: 2012Q1

REPORT INFORMATION
  Report Type: 
  Country: None (occurrence: None)
  Receive Date: 20120316
  Receipt Date: 20120309
  Transmission Date: 20120608
  Serious: No
  Sender: FDA-Public Use
  Company Number: US-PFIZER INC-2012064476

PATIENT

DRUGS (3)
  1. BACITRACIN [Suspect]
  2. NEOSPORIN [Suspect]
     Dosage: UNK
  3. NEOSPORIN [Suspect]
     Dosage: UNK

REACTIONS (1)
  - RASH [None]
